FAERS Safety Report 17478696 (Version 2)
Quarter: 2020Q1

REPORT INFORMATION
  Report Type: Report from Study
  Country: None (occurrence: US)
  Receive Date: 20200228
  Receipt Date: 20200326
  Transmission Date: 20200409
  Serious: Yes (Hospitalization, Other)
  Sender: FDA-Public Use
  Company Number: US-INSMED, INC.-US-INS-20-00174

PATIENT
  Age: 59 Year
  Sex: Female

DRUGS (3)
  1. ARIKAYCE [Suspect]
     Active Substance: AMIKACIN
     Indication: MYCOBACTERIAL INFECTION
     Route: 055
     Dates: end: 202002
  2. ARIKAYCE [Suspect]
     Active Substance: AMIKACIN
     Dosage: USES 4 TO 5 DAYS AND THEN HOLDS FOT 3 DAYS
     Route: 055
     Dates: start: 202002
  3. LAMIRA NEBULIZER SYSTEM [Suspect]
     Active Substance: DEVICE

REACTIONS (8)
  - Pulmonary congestion [Unknown]
  - Dysgeusia [Unknown]
  - Off label use [Unknown]
  - Cough [Unknown]
  - Hospitalisation [Unknown]
  - Dyspnoea [Unknown]
  - Discharge [Unknown]
  - General physical health deterioration [Unknown]

NARRATIVE: CASE EVENT DATE: 202001
